FAERS Safety Report 6368941-6 (Version None)
Quarter: 2009Q3

REPORT INFORMATION
  Report Type: 
  Country: None (occurrence: None)
  Receive Date: 20090922
  Receipt Date: 20090908
  Transmission Date: 20100115
  Serious: Yes (Other)
  Sender: FDA-Public Use
  Company Number: US-PFIZER INC-2009267717

PATIENT
  Sex: Female
  Weight: 79.378 kg

DRUGS (2)
  1. LIPITOR [Suspect]
     Indication: BLOOD CHOLESTEROL INCREASED
     Dates: end: 20090301
  2. CALCIUM [Concomitant]

REACTIONS (11)
  - BLOOD CHOLESTEROL INCREASED [None]
  - DIVERTICULITIS [None]
  - GASTROOESOPHAGEAL REFLUX DISEASE [None]
  - HYPERTONIA [None]
  - MUSCLE INJURY [None]
  - MYALGIA [None]
  - OSTEOPENIA [None]
  - PAIN IN EXTREMITY [None]
  - PLANTAR FASCIITIS [None]
  - SENSORY DISTURBANCE [None]
  - WEIGHT INCREASED [None]
